FAERS Safety Report 5219147-5 (Version None)
Quarter: 2007Q1

REPORT INFORMATION
  Report Type: 
  Country: None (occurrence: None)
  Receive Date: 20070125
  Receipt Date: 20070122
  Transmission Date: 20070707
  Serious: Yes (Other)
  Sender: FDA-Public Use
  Company Number: US-GLAXOSMITHKLINE-A0631129A

PATIENT
  Age: 43 Year
  Sex: Female

DRUGS (7)
  1. ADVAIR DISKUS 100/50 [Suspect]
     Indication: ASTHMA
     Dosage: 1PUFF TWICE PER DAY
     Route: 055
     Dates: start: 20061205
  2. PRILOSEC [Concomitant]
  3. KLONOPIN [Concomitant]
  4. LEXAPRO [Concomitant]
  5. ZINC [Concomitant]
  6. ULTRAM [Concomitant]
  7. DECONGESTANT [Concomitant]

REACTIONS (11)
  - CHEST PAIN [None]
  - DRUG INEFFECTIVE [None]
  - EAR PAIN [None]
  - HEADACHE [None]
  - MENINGITIS [None]
  - NASOPHARYNGITIS [None]
  - PHARYNGEAL OEDEMA [None]
  - RESPIRATORY TRACT INFECTION [None]
  - RHINORRHOEA [None]
  - THROAT TIGHTNESS [None]
  - VOMITING [None]
